FAERS Safety Report 9858734 (Version 2)
Quarter: 2014Q1

REPORT INFORMATION
  Report Type: Spontaneous
  Country: FR (occurrence: FR)
  Receive Date: 20140131
  Receipt Date: 20140131
  Transmission Date: 20141002
  Serious: Yes (Hospitalization)
  Sender: FDA-Public Use
  Company Number: FR-009507513-1401FRA012514

PATIENT
  Sex: Male

DRUGS (1)
  1. SINEMET UNSCORED TABLET [Suspect]
     Indication: PARKINSON^S DISEASE
     Dosage: 8 DF, QD
     Route: 048

REACTIONS (3)
  - Mental disorder [Unknown]
  - Wrong technique in drug usage process [Unknown]
  - Dysphagia [Not Recovered/Not Resolved]
